FAERS Safety Report 8840124 (Version 2)
Quarter: 2012Q4

REPORT INFORMATION
  Report Type: Report from Study
  Country: SE (occurrence: SE)
  Receive Date: 20121015
  Receipt Date: 20121016
  Transmission Date: 20130627
  Serious: Yes (Death, Hospitalization)
  Sender: FDA-Public Use
  Company Number: SE-ROCHE-1144389

PATIENT

DRUGS (3)
  1. BEVACIZUMAB [Suspect]
     Indication: COLON CANCER
     Dosage: date of last dose:06/sep/2012
     Route: 065
     Dates: start: 20120112, end: 20120906
  2. CAPECITABINE [Suspect]
     Indication: COLON CANCER
     Dosage: date of last dose:06/sep/2012
     Route: 065
     Dates: start: 20120112, end: 20120906
  3. OXALIPLATIN [Suspect]
     Indication: COLON CANCER
     Route: 065
     Dates: start: 20120112, end: 20120906

REACTIONS (1)
  - Ileal perforation [Fatal]
